FAERS Safety Report 12308069 (Version 3)
Quarter: 2016Q2

REPORT INFORMATION
  Report Type: Report from Study
  Country: US (occurrence: US)
  Receive Date: 20160426
  Receipt Date: 20160518
  Transmission Date: 20160815
  Serious: Yes (Other)
  Sender: FDA-Public Use
  Company Number: US-GILEAD-2016-0205146

PATIENT
  Age: 66 Year
  Sex: Female

DRUGS (3)
  1. REMODULIN [Suspect]
     Active Substance: TREPROSTINIL
     Indication: PRODUCT USED FOR UNKNOWN INDICATION
     Dosage: 0.008ML/HR, 2.5MG/ML
     Route: 065
     Dates: end: 20160505
  2. ADCIRCA [Concomitant]
     Active Substance: TADALAFIL
  3. AMBRISENTAN [Suspect]
     Active Substance: AMBRISENTAN
     Indication: PRODUCT USED FOR UNKNOWN INDICATION
     Dosage: 10 MG, QD
     Route: 065
     Dates: start: 20151001

REACTIONS (11)
  - Fatigue [Unknown]
  - Peripheral swelling [Unknown]
  - Dyspnoea [Unknown]
  - Pain in jaw [Unknown]
  - Back pain [Unknown]
  - Unevaluable event [Unknown]
  - Drug intolerance [Unknown]
  - Pain in extremity [Unknown]
  - Weight decreased [Unknown]
  - Oxygen saturation abnormal [Unknown]
  - Diarrhoea [Unknown]
